FAERS Safety Report 9072931 (Version 1)
Quarter: 2013Q1

REPORT INFORMATION
  Report Type: Report from Study
  Country: US (occurrence: US)
  Receive Date: 20130129
  Receipt Date: 20130129
  Transmission Date: 20140127
  Serious: No
  Sender: FDA-Public Use
  Company Number: US-ABBOTT-12P-163-0930770-00

PATIENT
  Age: 70 Year
  Sex: Female

DRUGS (13)
  1. HUMIRA 40 MG/0.8 ML PEN [Suspect]
     Indication: CROHN^S DISEASE
     Dates: start: 20110808
  2. NEBULIZER [Concomitant]
     Indication: DYSPNOEA
  3. NEBULIZER [Concomitant]
     Indication: EMPHYSEMA
  4. PEDUNISIDE [Concomitant]
     Indication: EMPHYSEMA
  5. DUONEB [Concomitant]
     Indication: PRODUCT USED FOR UNKNOWN INDICATION
     Dosage: VIALS, 4 TIMES DAILY
  6. XANAX [Concomitant]
     Indication: ANXIETY
     Dosage: 0.5MG ONCE DAILY
  7. PURINETHOL [Concomitant]
     Indication: CROHN^S DISEASE
     Dosage: 50MG ONCE DAILY
  8. IRON [Concomitant]
     Indication: PRODUCT USED FOR UNKNOWN INDICATION
     Dosage: PILLS
  9. ESTRADIOL [Concomitant]
     Indication: HORMONE LEVEL ABNORMAL
     Dosage: ONCE DAILY
  10. PRESERVISION [Concomitant]
     Indication: EYE DISORDER
     Dosage: PILLS
  11. WAL ZYR [Concomitant]
     Indication: SINUS DISORDER
     Dosage: PILLS, ONCE DAILY
  12. OS CAL [Concomitant]
     Indication: PRODUCT USED FOR UNKNOWN INDICATION
     Dosage: 1 DAILY
  13. PROTONIX [Concomitant]
     Indication: PRODUCT USED FOR UNKNOWN INDICATION
     Dosage: ONCE DAILY

REACTIONS (3)
  - Wrong technique in drug usage process [Recovered/Resolved]
  - Incorrect route of drug administration [Recovered/Resolved]
  - Incorrect dose administered [Recovered/Resolved]
